FAERS Safety Report 5800030-9 (Version None)
Quarter: 2008Q2

REPORT INFORMATION
  Report Type: 
  Country: None (occurrence: None)
  Receive Date: 20080626
  Receipt Date: 20070508
  Transmission Date: 20081010
  Serious: Yes (Other)
  Sender: FDA-Public Use
  Company Number: 489338

PATIENT
  Age: 80 Year
  Sex: Female

DRUGS (4)
  1. XELODA [Suspect]
     Indication: COLON CANCER
     Dosage: 1000 MG DAILY
     Dates: start: 20070312, end: 20070320
  2. FERROUS SULFATE TAB [Concomitant]
  3. LOPRESSOR [Concomitant]
  4. COLACE (DOCUSATE SODIUM) [Concomitant]

REACTIONS (1)
  - CEREBROVASCULAR ACCIDENT [None]
